FAERS Safety Report 10504120 (Version 1)
Quarter: 2014Q4

REPORT INFORMATION
  Report Type: Spontaneous
  Country: US (occurrence: None)
  Receive Date: 20141006
  Receipt Date: 20141006
  Transmission Date: 20150528
  Serious: Yes (Other)
  Sender: FDA-Public Use
  Company Number: PP-AE14-000367

PATIENT
  Age: 31 Month
  Sex: Male
  Weight: 13.61 kg

DRUGS (1)
  1. PEDIACARE CHILDRENS PLUS MULTISYMPTOM COLD [Suspect]
     Active Substance: ACETAMINOPHEN\CHLORPHENIRAMINE MALEATE\DEXTROMETHORPHAN HYDROBROMIDE
     Indication: NASOPHARYNGITIS
     Route: 048
     Dates: start: 20140904, end: 20140908

REACTIONS (4)
  - Accidental overdose [None]
  - Seizure [None]
  - Drug administered to patient of inappropriate age [None]
  - Diarrhoea [None]

NARRATIVE: CASE EVENT DATE: 20140909
